FAERS Safety Report 6332954-0 (Version None)
Quarter: 2009Q3

REPORT INFORMATION
  Report Type: 
  Country: None (occurrence: None)
  Receive Date: 20090828
  Receipt Date: 20090818
  Transmission Date: 20100115
  Serious: Yes (Other)
  Sender: FDA-Public Use
  Company Number: PHEH2009US08395

PATIENT
  Sex: Male

DRUGS (8)
  1. EXJADE [Suspect]
     Indication: APLASTIC ANAEMIA
     Dosage: 1375 MG DAILY
     Route: 048
     Dates: start: 20090715, end: 20090818
  2. EXJADE [Suspect]
     Indication: LYMPHOMA
  3. LISINOPRIL [Suspect]
  4. SIMVASTATIN [Concomitant]
  5. PRILOSEC [Concomitant]
  6. FOLIC ACID [Concomitant]
  7. MIRALAX [Concomitant]
  8. FLUCONAZOLE [Concomitant]

REACTIONS (5)
  - ABDOMINAL DISCOMFORT [None]
  - DIARRHOEA [None]
  - FLATULENCE [None]
  - HYPOTENSION [None]
  - NAUSEA [None]
